FAERS Safety Report 15302092 (Version 1)
Quarter: 2018Q3

REPORT INFORMATION
  Report Type: Spontaneous
  Country: DE (occurrence: DE)
  Receive Date: 20180821
  Receipt Date: 20180821
  Transmission Date: 20181010
  Serious: Yes (Hospitalization)
  Sender: FDA-Public Use
  Company Number: DE-SA-2018SA219392

PATIENT
  Age: 66 Year
  Sex: Female
  Weight: 82 kg

DRUGS (6)
  1. ZOFRAN [ONDANSETRON] [Concomitant]
     Dosage: UNK UNK, UNK
  2. DOCETAXEL. [Concomitant]
     Active Substance: DOCETAXEL
     Dosage: 100 MG/M2, UNK
     Route: 042
     Dates: start: 20101117, end: 20101117
  3. RAMIPRIL. [Concomitant]
     Active Substance: RAMIPRIL
     Indication: HYPERTENSION
     Dosage: 1 DF, UNK
     Route: 048
  4. BEVACIZUMAB. [Suspect]
     Active Substance: BEVACIZUMAB
     Indication: BREAST CANCER
     Dosage: 1230 MG, UNK
     Route: 042
     Dates: start: 20101022, end: 20101210
  5. DOCETAXEL. [Suspect]
     Active Substance: DOCETAXEL
     Indication: BREAST CANCER
     Dosage: 100 MG/M2, UNK
     Route: 042
     Dates: start: 20101022, end: 20101210
  6. DEXAMETHASON [DEXAMETHASONE] [Concomitant]
     Active Substance: DEXAMETHASONE
     Dosage: UNK, UNK

REACTIONS (2)
  - Cellulitis [Recovered/Resolved]
  - Abscess [Recovered/Resolved]

NARRATIVE: CASE EVENT DATE: 20110107
